FAERS Safety Report 15905536 (Version 1)
Quarter: 2019Q1

REPORT INFORMATION
  Report Type: Report from Study
  Country: AR (occurrence: AR)
  Receive Date: 20190204
  Receipt Date: 20190204
  Transmission Date: 20190417
  Serious: Yes (Hospitalization)
  Sender: FDA-Public Use
  Company Number: PHHY2019AR023690

PATIENT
  Sex: Male

DRUGS (1)
  1. ENTRESTO [Suspect]
     Active Substance: SACUBITRIL\VALSARTAN
     Indication: CARDIAC FAILURE
     Dosage: 1DF (50 MG), Q12H (24 MG OF SACUBITRIL, 26 MG OF VALSARTAN)
     Route: 065
     Dates: start: 201808, end: 201811

REACTIONS (5)
  - Hypotension [Recovering/Resolving]
  - Depressed mood [Recovering/Resolving]
  - Cardiac failure [Recovering/Resolving]
  - Drug intolerance [Recovering/Resolving]
  - Malaise [Recovering/Resolving]
